FAERS Safety Report 8552532-2 (Version None)
Quarter: 2012Q3

REPORT INFORMATION
  Report Type: 
  Country: None (occurrence: None)
  Receive Date: 20120731
  Receipt Date: 20120726
  Transmission Date: 20120928
  Serious: Yes (Hospitalization)
  Sender: FDA-Public Use
  Company Number: US-JNJFOC-20120713315

PATIENT
  Sex: Male
  Weight: 58.97 kg

DRUGS (3)
  1. XGEVA [Concomitant]
     Indication: PROSTATE CANCER
     Route: 058
  2. LUPRON [Concomitant]
     Indication: PROSTATE CANCER
     Route: 048
  3. ZYTIGA [Suspect]
     Indication: PROSTATE CANCER
     Route: 048
     Dates: start: 20120501

REACTIONS (10)
  - CARDIAC DISORDER [None]
  - MASS [None]
  - ABNORMAL LOSS OF WEIGHT [None]
  - PROSTATIC SPECIFIC ANTIGEN INCREASED [None]
  - ADVERSE EVENT [None]
  - ASTHENIA [None]
  - THROMBOSIS [None]
  - TOOTH INFECTION [None]
  - DECREASED APPETITE [None]
  - GAIT DISTURBANCE [None]
